FAERS Safety Report 8474327-0 (Version None)
Quarter: 2012Q2

REPORT INFORMATION
  Report Type: 
  Country: None (occurrence: None)
  Receive Date: 20120628
  Receipt Date: 20120618
  Transmission Date: 20120825
  Serious: Yes (Hospitalization)
  Sender: FDA-Public Use
  Company Number: DE-JNJFOC-20120506465

PATIENT
  Age: 46 Year
  Sex: Male

DRUGS (10)
  1. METAMIZOLE [Concomitant]
     Dosage: THREE TIMES A DAY
     Route: 065
  2. REMICADE [Suspect]
     Route: 042
     Dates: start: 20100531
  3. REMICADE [Suspect]
     Indication: PSORIATIC ARTHROPATHY
     Route: 042
     Dates: end: 20120217
  4. REMICADE [Suspect]
     Route: 042
     Dates: start: 20120105, end: 20120105
  5. PREDNISOLONE [Concomitant]
     Route: 065
  6. ALLOPURINOL [Concomitant]
     Route: 065
  7. IBUPROFEN [Concomitant]
     Dosage: TWICE DAILY
     Route: 065
  8. CEFUROXIME AXETIL [Suspect]
     Indication: RESPIRATORY TRACT INFECTION
     Route: 065
  9. PANTOPRAZOLE [Concomitant]
     Route: 065
  10. REMICADE [Suspect]
     Route: 042
     Dates: start: 20110101

REACTIONS (11)
  - EYE SWELLING [None]
  - OEDEMA PERIPHERAL [None]
  - ANTINUCLEAR ANTIBODY INCREASED [None]
  - ARTHRALGIA [None]
  - ERYTHEMA [None]
  - MYALGIA [None]
  - GENERAL PHYSICAL HEALTH DETERIORATION [None]
  - ABSCESS [None]
  - CUTANEOUS TUBERCULOSIS [None]
  - PSORIATIC ARTHROPATHY [None]
  - RESPIRATORY TRACT INFECTION [None]
